FAERS Safety Report 16399020 (Version 2)
Quarter: 2019Q2

REPORT INFORMATION
  Report Type: Report from Study
  Country: US (occurrence: US)
  Receive Date: 20190606
  Receipt Date: 20190621
  Transmission Date: 20190711
  Serious: Yes (Hospitalization, Other)
  Sender: FDA-Public Use
  Company Number: US-GILEAD-2019-0411399

PATIENT
  Age: 19 Year
  Sex: Female
  Weight: 62.9 kg

DRUGS (2)
  1. UPTRAVI [Concomitant]
     Active Substance: SELEXIPAG
     Indication: PULMONARY HYPERTENSION
  2. AMBRISENTAN [Suspect]
     Active Substance: AMBRISENTAN
     Indication: PULMONARY HYPERTENSION
     Dosage: 10 MG, QD
     Route: 048
     Dates: start: 20130514

REACTIONS (2)
  - Pulmonary oedema [Recovered/Resolved]
  - Product dose omission [Recovered/Resolved]

NARRATIVE: CASE EVENT DATE: 20190501
